FAERS Safety Report 12048636 (Version 3)
Quarter: 2016Q1

REPORT INFORMATION
  Report Type: Report from Study
  Country: US (occurrence: US)
  Receive Date: 20160209
  Receipt Date: 20160304
  Transmission Date: 20160526
  Serious: Yes (Disabling, Other)
  Sender: FDA-Public Use
  Company Number: US-GILEAD-2016-0191829

PATIENT
  Age: 67 Year
  Sex: Female

DRUGS (2)
  1. ORENITRAM [Suspect]
     Active Substance: TREPROSTINIL
     Indication: PRODUCT USED FOR UNKNOWN INDICATION
     Dosage: 1.75 MG, BID
     Route: 065
     Dates: start: 20160108
  2. AMBRISENTAN [Suspect]
     Active Substance: AMBRISENTAN
     Indication: PULMONARY HYPERTENSION
     Dosage: 10 MG, QD
     Route: 065
     Dates: start: 20150724

REACTIONS (13)
  - Activities of daily living impaired [Unknown]
  - Migraine [Unknown]
  - Haemoglobin increased [Unknown]
  - Vomiting [Unknown]
  - Balance disorder [Unknown]
  - Fall [Unknown]
  - Impaired driving ability [Unknown]
  - Malaise [Unknown]
  - Dyspnoea [Unknown]
  - Headache [Unknown]
  - Dizziness [Unknown]
  - Drug ineffective [Not Recovered/Not Resolved]
  - Malaise [Unknown]

NARRATIVE: CASE EVENT DATE: 20160108
